FAERS Safety Report 24389953 (Version 2)
Quarter: 2025Q4

REPORT INFORMATION
  Report Type: Spontaneous
  Country: EU (occurrence: EU)
  Receive Date: 20241003
  Receipt Date: 20251229
  Transmission Date: 20260118
  Serious: Yes (Other)
  Sender: SANOFI AVENTIS
  Company Number: EU-EMA-DD-20240826-7482827-083236

PATIENT
  Age: 53 Year
  Sex: Female
  Weight: 54 kg

DRUGS (44)
  1. TAXOTERE [Suspect]
     Active Substance: DOCETAXEL
     Indication: HER2 positive breast cancer
     Dosage: MOST RECENT DOSE PRIOR TO THE EVENT: 19/DEC/2018
     Route: 042
     Dates: start: 20170804, end: 201711
  2. TAXOTERE [Suspect]
     Active Substance: DOCETAXEL
     Dosage: 120 MG, Q3W
     Route: 042
     Dates: start: 20181219, end: 20190503
  3. CAPECITABINE [Suspect]
     Active Substance: CAPECITABINE
     Indication: HER2 positive breast cancer
     Dosage: 2000 MG, Q3W
     Route: 048
     Dates: start: 20190530, end: 20191125
  4. CAPECITABINE [Suspect]
     Active Substance: CAPECITABINE
     Dosage: 6000 MG, QW
     Route: 048
     Dates: start: 20190530, end: 20191125
  5. TYKERB [Suspect]
     Active Substance: LAPATINIB DITOSYLATE
     Indication: HER2 positive breast cancer
     Dosage: 1250 MG, QD
     Route: 048
     Dates: start: 20191125, end: 20191125
  6. NAVELBINE [Suspect]
     Active Substance: VINORELBINE TARTRATE
     Indication: Product used for unknown indication
     Dosage: 25 MG/M2, Q3W
     Route: 042
     Dates: start: 20200218, end: 20201009
  7. NAVELBINE [Suspect]
     Active Substance: VINORELBINE TARTRATE
     Dosage: 75 MG/M2, TIW
     Dates: start: 20170804, end: 201711
  8. NOLVADEX [Suspect]
     Active Substance: TAMOXIFEN CITRATE
     Indication: HER2 positive breast cancer
     Dosage: 20 MG, QD
     Route: 048
     Dates: start: 201610, end: 201706
  9. XGEVA [Suspect]
     Active Substance: DENOSUMAB
     Indication: HER2 positive breast cancer
     Dosage: 120 MG, Q4W
     Route: 058
     Dates: start: 20181219, end: 20201009
  10. XGEVA [Suspect]
     Active Substance: DENOSUMAB
     Indication: Metastases to spine
  11. KADCYLA [Suspect]
     Active Substance: ADO-TRASTUZUMAB EMTANSINE
     Indication: HER2 positive breast cancer
     Dosage: 200 MG, Q3W
     Route: 042
     Dates: start: 20180830, end: 201811
  12. GOSERELIN [Suspect]
     Active Substance: GOSERELIN
     Indication: HER2 positive breast cancer
     Dosage: 3.6 MG, Q4W
     Route: 058
     Dates: start: 201610, end: 201706
  13. GOSERELIN [Suspect]
     Active Substance: GOSERELIN
     Dosage: 6 MG/KG, Q3W
     Dates: start: 20201208
  14. PERJETA [Suspect]
     Active Substance: PERTUZUMAB
     Indication: HER2 positive breast cancer
     Dosage: 420 MG, Q3W
     Route: 042
     Dates: start: 20170824, end: 20180808
  15. PERJETA [Suspect]
     Active Substance: PERTUZUMAB
     Dosage: 420 MG, Q3W
     Route: 042
     Dates: start: 20190404, end: 20190624
  16. PERJETA [Suspect]
     Active Substance: PERTUZUMAB
     Dosage: 840 MG, QD
     Route: 042
     Dates: start: 20170804, end: 20170804
  17. PERJETA [Suspect]
     Active Substance: PERTUZUMAB
     Dosage: 1260 MG, QW (420.000MG TIW)
     Route: 042
     Dates: start: 20190404, end: 20190624
  18. PERJETA [Suspect]
     Active Substance: PERTUZUMAB
     Dosage: 1260 MG, QW (420.000MG TIW)
     Route: 042
     Dates: start: 20170824, end: 20180808
  19. HERCEPTIN [Suspect]
     Active Substance: TRASTUZUMAB
     Indication: HER2 positive breast cancer
     Dosage: 75 MG/M2, QW (25 MG/M2, TIW)
     Route: 040
     Dates: start: 20200218, end: 20201009
  20. HERCEPTIN [Suspect]
     Active Substance: TRASTUZUMAB
     Dosage: 18 MG/KG, QW (6.000MG/KG TIW)
     Route: 042
     Dates: start: 20200218, end: 20201009
  21. HERCEPTIN [Suspect]
     Active Substance: TRASTUZUMAB
     Dosage: 18 MG/KG, QW (6.000MG/KG TIW)
     Route: 042
     Dates: start: 20170824, end: 20180808
  22. HERCEPTIN [Suspect]
     Active Substance: TRASTUZUMAB
     Dosage: 1800 MG, QW (600.000MG TIW)
     Route: 042
     Dates: start: 20181219, end: 20191111
  23. HERCEPTIN [Suspect]
     Active Substance: TRASTUZUMAB
     Dosage: 24 MG/KG, QW (8.000MG/KG QD)
     Route: 042
     Dates: start: 20170804, end: 20170804
  24. FAMOTIDINE [Concomitant]
     Active Substance: FAMOTIDINE
     Indication: Gastrointestinal bacterial infection
     Dosage: 40 MG, QD
     Route: 042
     Dates: start: 20200512, end: 20200528
  25. VANCOMYCIN HYDROCHLORIDE [Concomitant]
     Active Substance: VANCOMYCIN HYDROCHLORIDE
     Indication: Gastrointestinal bacterial infection
     Dosage: 500 MG, QD
     Route: 048
     Dates: start: 20200512, end: 20200528
  26. VANCOMYCIN HYDROCHLORIDE [Concomitant]
     Active Substance: VANCOMYCIN HYDROCHLORIDE
     Dosage: 3.6 MG, Q4W
     Route: 058
     Dates: start: 201610, end: 201706
  27. RINGERS SOLUTION [Concomitant]
     Active Substance: CALCIUM CHLORIDE\POTASSIUM CHLORIDE\SODIUM CHLORIDE
     Indication: Paraparesis
     Dosage: 500 MG, BID
     Route: 042
     Dates: start: 20200421, end: 20200508
  28. METRONIDAZOLE [Concomitant]
     Active Substance: METRONIDAZOLE
     Indication: Gastrointestinal bacterial infection
     Dosage: 1500 MG
     Route: 048
     Dates: start: 20200512, end: 20200518
  29. FENTANYL CITRATE [Concomitant]
     Active Substance: FENTANYL CITRATE
     Dosage: UNK
  30. FENTANYL CITRATE [Concomitant]
     Active Substance: FENTANYL CITRATE
  31. GENTAMICIN [Concomitant]
     Active Substance: GENTAMICIN
     Indication: Paraparesis
     Dosage: 80 MG, BID
     Route: 048
     Dates: start: 20200421, end: 20200508
  32. GENTAMICIN [Concomitant]
     Active Substance: GENTAMICIN
     Dosage: 420 MG, Q3W
     Route: 040
     Dates: start: 20170824, end: 20180808
  33. MORPHINE [Concomitant]
     Active Substance: MORPHINE
     Indication: Product used for unknown indication
     Dosage: UNK
  34. MORPHINE [Concomitant]
     Active Substance: MORPHINE
     Dosage: UNK
     Route: 065
  35. MORPHINE [Concomitant]
     Active Substance: MORPHINE
     Dosage: UNK
     Route: 065
  36. MORPHINE [Concomitant]
     Active Substance: MORPHINE
     Dosage: 200 MG (200 MG 200 MG, Q3W
     Route: 040
     Dates: start: 20180830, end: 201811
  37. METRONIDAZOLE [Concomitant]
     Active Substance: METRONIDAZOLE
     Indication: Product used for unknown indication
     Dosage: 250 MG
     Route: 040
     Dates: start: 20200421, end: 20200508
  38. RINGERS SOLUTION [Concomitant]
     Active Substance: CALCIUM CHLORIDE\POTASSIUM CHLORIDE\SODIUM CHLORIDE
     Indication: Paraparesis
     Dosage: 840 MG, QD
     Route: 040
     Dates: start: 20170804, end: 20170804
  39. RINGERS SOLUTION [Concomitant]
     Active Substance: CALCIUM CHLORIDE\POTASSIUM CHLORIDE\SODIUM CHLORIDE
     Dosage: 500 MG, BID
     Route: 042
     Dates: start: 20200421, end: 20200508
  40. XGEVA [Concomitant]
     Active Substance: DENOSUMAB
     Indication: HER2 positive breast cancer
     Dosage: 40 MG, QD
     Route: 040
     Dates: start: 20200512, end: 20200528
  41. XGEVA [Concomitant]
     Active Substance: DENOSUMAB
     Indication: Metastases to spine
     Dosage: 120 MG, Q4W
     Route: 058
     Dates: start: 20181219
  42. XGEVA [Concomitant]
     Active Substance: DENOSUMAB
     Dosage: 120 MG, QW
     Route: 058
     Dates: start: 201808, end: 20201009
  43. MANNITOL [Concomitant]
     Active Substance: MANNITOL
     Indication: Product used for unknown indication
     Dosage: 250 MG
     Route: 040
     Dates: start: 20200421, end: 20200508
  44. MANNITOL [Concomitant]
     Active Substance: MANNITOL
     Dosage: 6 MG/KG, Q3W
     Route: 040
     Dates: start: 20170824, end: 20180808

REACTIONS (4)
  - Compression fracture [Recovered/Resolved]
  - Paraparesis [Recovered/Resolved]
  - Gastrointestinal bacterial infection [Recovered/Resolved]
  - Pelvic pain [Not Recovered/Not Resolved]

NARRATIVE: CASE EVENT DATE: 20191201
